FAERS Safety Report 7022241-X (Version None)
Quarter: 2010Q3

REPORT INFORMATION
  Report Type: 
  Country: None (occurrence: None)
  Receive Date: 20100930
  Receipt Date: 20100917
  Transmission Date: 20110219
  Serious: Yes (Other)
  Sender: FDA-Public Use
  Company Number: US-ELI_LILLY_AND_COMPANY-US201009005440

PATIENT
  Age: 70 Year
  Sex: Female

DRUGS (5)
  1. CYMBALTA [Suspect]
     Indication: NEURALGIA
     Dosage: 20 MG, 3/D
  2. CYMBALTA [Suspect]
     Dosage: 20 MG, 2/D
  3. LYRICA [Concomitant]
  4. PREDNISONE [Concomitant]
  5. LASIX [Concomitant]

REACTIONS (5)
  - ASTHENIA [None]
  - DYSPNOEA [None]
  - OFF LABEL USE [None]
  - OXYGEN SATURATION DECREASED [None]
  - TREMOR [None]
